FAERS Safety Report 10169071 (Version 1)
Quarter: 2014Q2

REPORT INFORMATION
  Report Type: Spontaneous
  Country: US (occurrence: None)
  Receive Date: 20140509
  Receipt Date: 20140509
  Transmission Date: 20141212
  Serious: Yes (Other)
  Sender: FDA-Public Use
  Company Number: UTC-048192

PATIENT
  Age: 57 Year
  Sex: Female
  Weight: 138.3 kg

DRUGS (1)
  1. REMODULIN [Suspect]
     Dosage: 72.72 UG/KG (0.0505 UG/KG 1 IN 1 MIN), SUBCUTANEOUS
     Route: 058
     Dates: start: 20131002

REACTIONS (2)
  - Amnesia [None]
  - Drug dose omission [None]
